FAERS Safety Report 15869141 (Version 1)
Quarter: 2019Q1

REPORT INFORMATION
  Report Type: Spontaneous
  Country: FR (occurrence: FR)
  Receive Date: 20190125
  Receipt Date: 20190125
  Transmission Date: 20190417
  Serious: Yes (Congenital Anomaly)
  Sender: FDA-Public Use
  Company Number: FR-PURDUE PHARMA-GBR-2019-0063557

PATIENT
  Sex: Male
  Weight: 2.98 kg

DRUGS (1)
  1. OXYCONTIN [Suspect]
     Active Substance: OXYCODONE HYDROCHLORIDE
     Indication: FIBROMYALGIA
     Route: 064
     Dates: start: 201706, end: 201709

REACTIONS (1)
  - Pyelocaliectasis [Not Recovered/Not Resolved]

NARRATIVE: CASE EVENT DATE: 20180220
